FAERS Safety Report 4920193-7 (Version None)
Quarter: 2006Q1

REPORT INFORMATION
  Report Type: 
  Country: None (occurrence: None)
  Receive Date: 20060217
  Receipt Date: 20060201
  Transmission Date: 20060701
  Serious: Yes (Hospitalization)
  Sender: FDA-Public Use
  Company Number: 221897

PATIENT
  Age: 54 Year
  Sex: Female

DRUGS (12)
  1. AVASTIN [Suspect]
     Indication: COLON CANCER
     Dosage: 316 MG, Q2W, INTRAVENOUS
     Route: 042
     Dates: start: 20051116
  2. OXALIPLATIN(OXALIPLATIN) [Suspect]
     Indication: COLON CANCER
     Dosage: 143 MG,Q2W,INTRAVENOUS
     Route: 042
     Dates: start: 20051116
  3. FLUOROURACIL [Suspect]
     Indication: COLON CANCER
     Dosage: QDX2D/14DC,INTRAVENOUS
     Route: 042
     Dates: start: 20051116
  4. LEUCOVORIN CALCIUM [Suspect]
     Indication: COLON CANCER
     Dosage: 338 MG,QDX2D/14DC,INTRAVENOUS
     Route: 042
     Dates: start: 20051116
  5. MULTIVITAMINS NOS (MULTIVITAMINS NOS) [Concomitant]
  6. DIVALPROEX (DIVALPROEX SODIUM) [Concomitant]
  7. CALCIUM NOS (CALCIUM NOS) [Concomitant]
  8. ASCORBIC ACID [Concomitant]
  9. TYLENOL #3 (CANADA) (ACETAMINOPHEN, CAFFEINE, CODEINE PHOSPHATE) [Concomitant]
  10. TYLENOL EXTRA STRENGTH (ACETAMINOPHEN) [Concomitant]
  11. PREDNISONE TAB [Concomitant]
  12. DECADRON [Concomitant]

REACTIONS (5)
  - DEHYDRATION [None]
  - DIARRHOEA [None]
  - DYSPEPSIA [None]
  - NAUSEA [None]
  - VOMITING [None]
